FAERS Safety Report 23934070 (Version 1)
Quarter: 2024Q2

REPORT INFORMATION
  Report Type: Spontaneous
  Country: US (occurrence: US)
  Receive Date: 20240603
  Receipt Date: 20240603
  Transmission Date: 20240716
  Serious: No
  Sender: FDA-Public Use
  Company Number: US-BAUSCH-BL-2024-008173

PATIENT
  Sex: Female

DRUGS (2)
  1. ARAZLO [Suspect]
     Active Substance: TAZAROTENE
     Indication: Acne
     Dosage: USING FOR ABOUT A MONTH
     Route: 061
     Dates: start: 2024
  2. .ALPHA.-TOCOPHEROL\CETYL ALCOHOL [Suspect]
     Active Substance: .ALPHA.-TOCOPHEROL\CETYL ALCOHOL
     Indication: Product used for unknown indication
     Dosage: CETAPHIL WITH SPF IN MORNING
     Route: 061

REACTIONS (2)
  - Acne [Recovering/Resolving]
  - Application site pain [Recovering/Resolving]
